FAERS Safety Report 20079469 (Version 1)
Quarter: 2021Q4

REPORT INFORMATION
  Report Type: Spontaneous
  Country: JP (occurrence: JP)
  Receive Date: 20211117
  Receipt Date: 20211117
  Transmission Date: 20220303
  Serious: Yes (Other)
  Sender: FDA-Public Use
  Company Number: JP-NOVARTISPH-NVSJ2021JP018763

PATIENT

DRUGS (1)
  1. SYMMETREL [Suspect]
     Active Substance: AMANTADINE HYDROCHLORIDE
     Indication: Product used for unknown indication
     Dosage: 50MG IN THE MORNING AND 50MG IN THE EVENING
     Route: 048

REACTIONS (2)
  - Jaundice [Unknown]
  - Vomiting [Unknown]
